FAERS Safety Report 16253470 (Version 2)
Quarter: 2019Q2

REPORT INFORMATION
  Report Type: Spontaneous
  Country: FR (occurrence: FR)
  Receive Date: 20190430
  Receipt Date: 20190527
  Transmission Date: 20190711
  Serious: Yes (Death)
  Sender: FDA-Public Use
  Company Number: FR-B.I. PHARMACEUTICALS,INC./RIDGEFIELD-2019-12-001391

PATIENT
  Age: 76 Year
  Sex: Male

DRUGS (1)
  1. PRADAXA [Suspect]
     Active Substance: DABIGATRAN ETEXILATE MESYLATE
     Indication: ATRIAL FIBRILLATION
     Dosage: NON PRECISEE
     Route: 048
     Dates: start: 20190310, end: 20190310

REACTIONS (3)
  - Anaemia [Fatal]
  - Embolism [Fatal]
  - Haematoma [Fatal]

NARRATIVE: CASE EVENT DATE: 20190311
